FAERS Safety Report 19191476 (Version 6)
Quarter: 2023Q1

REPORT INFORMATION
  Report Type: Report from Study
  Country: JP (occurrence: JP)
  Receive Date: 20210429
  Receipt Date: 20230123
  Transmission Date: 20230417
  Serious: Yes (Life-Threatening, Hospitalization, Other)
  Sender: FDA-Public Use
  Company Number: JP-JNJFOC-A-CH2017-157705

PATIENT
  Age: 38 Year
  Sex: Male

DRUGS (38)
  1. OPSUMIT [Suspect]
     Active Substance: MACITENTAN
     Indication: Pulmonary arterial hypertension
     Dosage: 10 MG, OD  IN THE MORNING
     Route: 048
     Dates: start: 20150730
  2. FLOLAN [Suspect]
     Active Substance: EPOPROSTENOL SODIUM
     Indication: Pulmonary arterial hypertension
     Dosage: 167 NG/KG, PER MIN
     Route: 041
     Dates: start: 201006, end: 20201206
  3. AZOSEMIDE [Concomitant]
     Active Substance: AZOSEMIDE
     Indication: Right ventricular failure
     Route: 048
     Dates: start: 20150520
  4. LASIX [Concomitant]
     Active Substance: FUROSEMIDE
     Indication: Right ventricular failure
     Dosage: 1-2 TIMES
     Route: 048
  5. LASIX [Concomitant]
     Active Substance: FUROSEMIDE
     Route: 048
  6. URINORM [BENZBROMARONE] [Concomitant]
     Indication: Hyperuricaemia
     Dosage: 25-50MG
     Route: 048
     Dates: start: 20100701
  7. URINORM [BENZBROMARONE] [Concomitant]
     Dosage: 25-50MG
     Route: 048
  8. POTASSIUM ASPARTATE [Concomitant]
     Active Substance: POTASSIUM ASPARTATE
     Indication: Hypokalaemia
     Route: 048
     Dates: start: 20150520
  9. POTASSIUM ASPARTATE [Concomitant]
     Active Substance: POTASSIUM ASPARTATE
     Route: 048
  10. POTASSIUM ASPARTATE [Concomitant]
     Active Substance: POTASSIUM ASPARTATE
     Route: 048
  11. LOPERAMIDE HYDROCHLORIDE [Concomitant]
     Active Substance: LOPERAMIDE HYDROCHLORIDE
     Indication: Diarrhoea
     Route: 048
     Dates: start: 20100701
  12. SPIRONOLACTONE [Concomitant]
     Active Substance: SPIRONOLACTONE
     Indication: Right ventricular failure
     Dosage: 1-2 TIMES
     Route: 048
     Dates: start: 20110104
  13. SPIRONOLACTONE [Concomitant]
     Active Substance: SPIRONOLACTONE
     Dosage: 1-2 TIMES
     Route: 048
  14. OXYGEN [Concomitant]
     Active Substance: OXYGEN
     Dosage: DOSE UNKNOWN
     Route: 055
  15. CEFAZOLIN SODIUM [Concomitant]
     Active Substance: CEFAZOLIN SODIUM
     Indication: Infection prophylaxis
     Route: 042
     Dates: start: 20170715, end: 20170721
  16. SULTAMICILLIN TOSYLATE [Concomitant]
     Active Substance: SULTAMICILLIN TOSYLATE
     Indication: Infection prophylaxis
     Route: 048
     Dates: start: 20170721, end: 20170728
  17. SULTAMICILLIN TOSYLATE [Concomitant]
     Active Substance: SULTAMICILLIN TOSYLATE
     Route: 048
     Dates: start: 20180606, end: 20190615
  18. LOXOPROFEN SODIUM [Concomitant]
     Active Substance: LOXOPROFEN SODIUM
     Indication: Pyrexia
     Route: 048
     Dates: start: 20161031
  19. RABEPRAZOLE SODIUM [Concomitant]
     Active Substance: RABEPRAZOLE SODIUM
     Indication: Duodenal ulcer
     Route: 048
     Dates: start: 20161115, end: 20161202
  20. ZOLPIDEM TARTRATE [Concomitant]
     Active Substance: ZOLPIDEM TARTRATE
     Indication: Prophylaxis
     Route: 048
     Dates: start: 20161115, end: 20161129
  21. THROMBIN [Concomitant]
     Active Substance: THROMBIN
     Indication: Gastrointestinal haemorrhage
     Route: 048
     Dates: start: 20161118, end: 20161125
  22. CEFOPERAZONE SODIUM\SULBACTAM SODIUM [Concomitant]
     Active Substance: CEFOPERAZONE SODIUM\SULBACTAM SODIUM
     Indication: Biliary tract infection
     Route: 042
     Dates: start: 20161031, end: 20161108
  23. MEROPENEM [Concomitant]
     Active Substance: MEROPENEM
     Indication: Biliary tract infection
     Route: 042
     Dates: start: 20161111, end: 20161114
  24. FENTANYL [Concomitant]
     Active Substance: FENTANYL
     Indication: Abdominal pain
     Dosage: 38G/H
     Route: 042
     Dates: start: 20161111, end: 20161114
  25. GABEXATE MESYLATE [Concomitant]
     Active Substance: GABEXATE MESYLATE
     Indication: Prophylaxis
     Dosage: 40MG/H
     Route: 042
     Dates: start: 20161116, end: 20161118
  26. GABEXATE MESYLATE [Concomitant]
     Active Substance: GABEXATE MESYLATE
     Dosage: 40MG/H
     Route: 042
     Dates: start: 20161121, end: 20161123
  27. TREPROSTINIL [Concomitant]
     Active Substance: TREPROSTINIL
     Indication: Pulmonary arterial hypertension
     Dosage: 228NG/KG/MIN
     Route: 041
     Dates: start: 20201207
  28. HYALURONATE SODIUM [Concomitant]
     Active Substance: HYALURONATE SODIUM
     Indication: Prophylaxis
     Dosage: DOSE UNKNOWN
     Route: 047
     Dates: start: 20191108
  29. POTASSIUM IODIDE [Concomitant]
     Active Substance: POTASSIUM IODIDE
     Indication: Prophylaxis
     Route: 048
     Dates: start: 20171013, end: 20180817
  30. LEVOFLOXACIN HEMIHYDRATE [Concomitant]
     Active Substance: LEVOFLOXACIN
     Indication: Infection prophylaxis
     Route: 048
     Dates: start: 20171111, end: 20171210
  31. LEVOFLOXACIN HEMIHYDRATE [Concomitant]
     Active Substance: LEVOFLOXACIN
     Route: 048
     Dates: start: 20180531, end: 20180606
  32. FLOMOX [CEFCAPENE PIVOXIL HYDROCHLORIDE HYDRATE] [Concomitant]
     Indication: Infection prophylaxis
     Route: 048
     Dates: start: 20180726, end: 20180802
  33. AMOXICILLIN TRIHYDRATE [Concomitant]
     Active Substance: AMOXICILLIN
     Indication: Infection prophylaxis
     Route: 048
     Dates: start: 20180707, end: 20180710
  34. WARFARIN POTASSIUM [Concomitant]
     Active Substance: WARFARIN POTASSIUM
     Indication: Atrial fibrillation
     Route: 048
     Dates: start: 20210207
  35. FERROUS FUMARATE [Concomitant]
     Active Substance: FERROUS FUMARATE
     Indication: Blood loss anaemia
     Route: 048
     Dates: start: 20151126, end: 20160204
  36. UNSPECIFIED INGREDIENT [Concomitant]
     Active Substance: UNSPECIFIED INGREDIENT
     Indication: Cholecystitis acute
     Dosage: DOSE UNKNOWN
     Route: 065
     Dates: start: 20161031
  37. UNSPECIFIED INGREDIENT [Concomitant]
     Active Substance: UNSPECIFIED INGREDIENT
     Indication: Catheter site infection
     Dosage: DOSE UNKNOWN
     Dates: start: 2017, end: 2017
  38. UNSPECIFIED INGREDIENT [Concomitant]
     Active Substance: UNSPECIFIED INGREDIENT
     Route: 065
     Dates: start: 2018

REACTIONS (7)
  - Cholecystitis acute [Recovered/Resolved]
  - Post procedural haemorrhage [Recovered/Resolved]
  - Endocrine ophthalmopathy [Recovering/Resolving]
  - Basedow^s disease [Recovering/Resolving]
  - Epistaxis [Recovering/Resolving]
  - Blood loss anaemia [Recovering/Resolving]
  - Catheter site infection [Recovered/Resolved]

NARRATIVE: CASE EVENT DATE: 20151001
